FAERS Safety Report 8618078 (Version 8)
Quarter: 2015Q2

REPORT INFORMATION
  Report Type: Report from Study
  Country: KR (occurrence: KR)
  Receive Date: 20120615
  Receipt Date: 20150601
  Transmission Date: 20150821
  Serious: Yes (Hospitalization)
  Sender: FDA-Public Use
  Company Number: KR-ROCHE-1069374

PATIENT
  Age: 64 Year
  Sex: Female
  Weight: 60.4 kg

DRUGS (5)
  1. VEMURAFENIB [Suspect]
     Active Substance: VEMURAFENIB
     Indication: MALIGNANT MELANOMA
     Dosage: LAST DOSE PRIOR TO SAE: 11/MAY/2012
     Route: 048
     Dates: start: 20111219, end: 20120514
  2. LAFUTIDINE [Concomitant]
     Active Substance: LAFUTIDINE
     Route: 065
     Dates: start: 20120511, end: 20120528
  3. VEMURAFENIB [Suspect]
     Active Substance: VEMURAFENIB
     Route: 048
     Dates: start: 20120523
  4. ALPRAZOLAM. [Concomitant]
     Active Substance: ALPRAZOLAM
     Route: 065
     Dates: start: 20111215
  5. MEGACE [Concomitant]
     Active Substance: MEGESTROL ACETATE
     Dosage: SYRUP
     Route: 065
     Dates: start: 20120511, end: 20120515

REACTIONS (1)
  - Cholecystitis [Recovered/Resolved]

NARRATIVE: CASE EVENT DATE: 20120511
